FAERS Safety Report 9697800 (Version 2)
Quarter: 2014Q1

REPORT INFORMATION
  Report Type: Report from Study
  Country: US (occurrence: US)
  Receive Date: 20131120
  Receipt Date: 20140306
  Transmission Date: 20141002
  Serious: Yes (Hospitalization)
  Sender: FDA-Public Use
  Company Number: PHEH2013US024031

PATIENT
  Sex: Female

DRUGS (2)
  1. TOBI [Suspect]
     Indication: CYSTIC FIBROSIS
     Dosage: 300 MG, BID (300 MG/5 ML)
     Route: 055
  2. TOBI [Suspect]
     Dosage: UNK UKN, UNK

REACTIONS (1)
  - Pseudomonas infection [Unknown]
